FAERS Safety Report 8696388 (Version 2)
Quarter: 2012Q4

REPORT INFORMATION
  Report Type: 
  Country: JP (occurrence: JP)
  Receive Date: 20120801
  Receipt Date: 20121220
  Transmission Date: 20130627
  Serious: Yes (Other)
  Sender: FDA-Public Use
  Company Number: JP-009507513-1207JPN010993

PATIENT
  Age: 66 Year
  Sex: Male

DRUGS (12)
  1. REBETOL [Suspect]
     Indication: CHRONIC HEPATITIS C
     Dosage: 400 mg200 mg in morning in evening qd
     Route: 048
     Dates: start: 20100816, end: 20100930
  2. REBETOL [Suspect]
     Dosage: 200 mg, bid
     Route: 048
     Dates: start: 20101001, end: 20101014
  3. REBETOL [Suspect]
     Dosage: 200 mg, bid
     Route: 048
     Dates: start: 20101015, end: 20110204
  4. FERON [Suspect]
     Indication: CHRONIC HEPATITIS C
     Dosage: 6 million-billion Unit, qd
     Route: 041
     Dates: start: 20100816, end: 20100818
  5. FERON [Suspect]
     Dosage: 5 million-billion Unit, qd
     Route: 041
     Dates: start: 20100819, end: 20100821
  6. FERON [Suspect]
     Dosage: 4 million-billion Unit, qd
     Route: 041
     Dates: start: 20100823, end: 20100906
  7. FERON [Suspect]
     Dosage: 5 million-billion Unit, qd
     Route: 041
     Dates: start: 20100907, end: 20100918
  8. FERON [Suspect]
     Dosage: 6 million-billion Unit, tiw
     Route: 041
     Dates: start: 20100921, end: 20101012
  9. PEGINTRON [Suspect]
     Indication: CHRONIC HEPATITIS C
     Dosage: 100 Microgram, qw
     Route: 058
     Dates: start: 20101015, end: 20110204
  10. LOXONIN [Concomitant]
     Indication: PROPHYLAXIS
     Dosage: Formulation:POR, The divided dose frequency is uncertain.
     Route: 048
     Dates: start: 20100816, end: 20101014
  11. LOXONIN [Concomitant]
     Dosage: UNK
     Dates: end: 20110204
  12. MUCOSTA [Concomitant]

REACTIONS (7)
  - Red blood cell count decreased [Recovered/Resolved]
  - Haemoglobin decreased [Recovered/Resolved]
  - Platelet count decreased [Recovered/Resolved]
  - Protein total decreased [Recovered/Resolved]
  - Blood albumin decreased [Recovered/Resolved]
  - White blood cell count decreased [Unknown]
  - Neutrophil count decreased [Unknown]
